FAERS Safety Report 5431764-6 (Version None)
Quarter: 2007Q3

REPORT INFORMATION
  Report Type: 
  Country: None (occurrence: None)
  Receive Date: 20070830
  Receipt Date: 20070820
  Transmission Date: 20080115
  Serious: Yes (Other)
  Sender: FDA-Public Use
  Company Number: GB-SHR-GB-2007-031759

PATIENT
  Age: 75 Year
  Sex: Male

DRUGS (6)
  1. FLUDARA (UNK. FORMULATION) [Suspect]
     Indication: WALDENSTROM'S MACROGLOBULINAEMIA
     Dosage: 25 MG/M2, CYCLE X 5D
     Route: 042
  2. DEXAMETHASONE 0.5MG TAB [Concomitant]
     Indication: WALDENSTROM'S MACROGLOBULINAEMIA
     Dosage: 20 MG, CYCLE X 5D
  3. MITOXANTRONE [Concomitant]
     Indication: WALDENSTROM'S MACROGLOBULINAEMIA
     Dosage: 10 MG/M2, CYCLES, DAY 1
  4. PREDNISOLONE [Concomitant]
     Dosage: 50 MG/D,
     Route: 048
  5. PREDNISOLONE [Concomitant]
     Dosage: 40 MG/D, CYCLES
  6. CHLORAMBUCIL [Concomitant]
     Dosage: 10 MG/D, CYCLES

REACTIONS (1)
  - DIFFUSE LARGE B-CELL LYMPHOMA [None]
